FAERS Safety Report 9872223 (Version 2)
Quarter: 2014Q1

REPORT INFORMATION
  Report Type: Spontaneous
  Country: None (occurrence: US)
  Receive Date: 20140205
  Receipt Date: 20140205
  Transmission Date: 20141002
  Serious: No
  Sender: FDA-Public Use
  Company Number: US-ALLERGAN-1306174US

PATIENT
  Age: 46 Year
  Sex: Female

DRUGS (8)
  1. BOTOX COSMETIC [Suspect]
     Indication: SKIN WRINKLING
     Dosage: 34 UNITS, SINGLE
     Route: 030
     Dates: start: 20130416, end: 20130416
  2. BOTOX COSMETIC [Suspect]
     Indication: SKIN WRINKLING
     Dosage: 3 UNITS, SINGLE
     Route: 030
     Dates: start: 20130416, end: 20130416
  3. BOTOX COSMETIC [Suspect]
     Indication: SKIN WRINKLING
     Dosage: 3 UNITS, SINGLE
     Route: 030
     Dates: start: 20130416, end: 20130416
  4. BOTOX COSMETIC [Suspect]
     Indication: SKIN WRINKLING
  5. BOTOX COSMETIC [Suspect]
     Indication: FACE LIFT
  6. SINGULAIR                          /01362601/ [Concomitant]
     Indication: HYPERSENSITIVITY
     Dosage: UNK
     Route: 048
  7. INTAXALONE [Concomitant]
     Indication: MUSCLE RELAXANT THERAPY
     Dosage: 80 MG, PRN
     Route: 048
  8. ANAPROX [Concomitant]
     Indication: PRODUCT USED FOR UNKNOWN INDICATION
     Dosage: 550 MG, PRN
     Route: 048

REACTIONS (9)
  - Drug hypersensitivity [Unknown]
  - Injection site haemorrhage [Unknown]
  - Eyelid ptosis [Unknown]
  - Facial paresis [Unknown]
  - Eyelid ptosis [Unknown]
  - Eyelid ptosis [Unknown]
  - Eyelid ptosis [Unknown]
  - Vision blurred [Unknown]
  - Therapeutic response decreased [Unknown]
